FAERS Safety Report 23637312 (Version 1)
Quarter: 2024Q1

REPORT INFORMATION
  Report Type: Spontaneous
  Country: AU (occurrence: AU)
  Receive Date: 20240315
  Receipt Date: 20240315
  Transmission Date: 20240410
  Serious: Yes (Hospitalization, Disabling)
  Sender: FDA-Public Use
  Company Number: AU-BIOVITRUM-2024-AU-004058

PATIENT
  Age: 42 Year
  Sex: Female
  Weight: 94 kg

DRUGS (7)
  1. ANAKINRA [Suspect]
     Active Substance: ANAKINRA
     Indication: Hidradenitis
     Dates: start: 2015
  2. HUMIRA [Suspect]
     Active Substance: ADALIMUMAB
     Indication: Hidradenitis
     Dates: start: 2018
  3. REMICADE [Suspect]
     Active Substance: INFLIXIMAB
     Indication: Hidradenitis
     Dosage: INTRAVENOUS INFUSION
     Dates: start: 2012, end: 2015
  4. CLINDAMYCIN [Suspect]
     Active Substance: CLINDAMYCIN
     Indication: Hidradenitis
  5. DOXYCYCLINE [Suspect]
     Active Substance: DOXYCYCLINE
     Indication: Hidradenitis
  6. METHOTREXATE [Suspect]
     Active Substance: METHOTREXATE
     Indication: Hidradenitis
     Route: 048
  7. MINOCYCLINE HYDROCHLORIDE DIHYDRATE [Suspect]
     Active Substance: MINOCYCLINE HYDROCHLORIDE DIHYDRATE
     Indication: Hidradenitis

REACTIONS (6)
  - Depression [Unknown]
  - Hidradenitis [Unknown]
  - Condition aggravated [Unknown]
  - Feeling abnormal [Unknown]
  - Pain [Unknown]
  - Therapeutic product effect incomplete [Unknown]
